FAERS Safety Report 10710612 (Version 1)
Quarter: 2015Q1

REPORT INFORMATION
  Report Type: Spontaneous
  Country: US (occurrence: None)
  Receive Date: 20150112
  Receipt Date: 20150112
  Transmission Date: 20150721
  Serious: Yes (Death, Other)
  Sender: FDA-Public Use
  Company Number: US-ALKEM-000809

PATIENT
  Age: 63 Year
  Sex: Male

DRUGS (2)
  1. MYCOPHENOLATE MOFETIL (MYCOPHENOLATE MOFETIL) [Suspect]
     Active Substance: MYCOPHENOLATE MOFETIL
     Indication: PROPHYLAXIS AGAINST GRAFT VERSUS HOST DISEASE
  2. TACROLIMUS (TACROLIMUS) [Suspect]
     Active Substance: TACROLIMUS
     Indication: PROPHYLAXIS AGAINST GRAFT VERSUS HOST DISEASE

REACTIONS (11)
  - Ascites [None]
  - Off label use [None]
  - Hepatitis cholestatic [None]
  - Respiratory distress [None]
  - Hepatic necrosis [None]
  - Coagulopathy [None]
  - Encephalopathy [None]
  - Renal failure [None]
  - Hepatitis C [None]
  - Portal fibrosis [None]
  - International normalised ratio increased [None]
